FAERS Safety Report 17477519 (Version 1)
Quarter: 2020Q1

REPORT INFORMATION
  Report Type: Spontaneous
  Country: FR (occurrence: FR)
  Receive Date: 20200229
  Receipt Date: 20200229
  Transmission Date: 20200409
  Serious: Yes (Hospitalization, Other)
  Sender: FDA-Public Use
  Company Number: FR-AUROBINDO-AUR-APL-2020-009915

PATIENT
  Age: 80 Year
  Sex: Female
  Weight: 69 kg

DRUGS (9)
  1. LEPTICUR [Concomitant]
     Active Substance: TROPATEPINE HYDROCHLORIDE
     Indication: PRODUCT USED FOR UNKNOWN INDICATION
     Dosage: UNK
     Route: 065
  2. PANTOPRAZOLE [Suspect]
     Active Substance: PANTOPRAZOLE
     Indication: PRODUCT USED FOR UNKNOWN INDICATION
     Dosage: QD 0-0-1
     Route: 065
  3. DEPAMIDE [Suspect]
     Active Substance: VALPROMIDE
     Dosage: 4 DOSAGE FORM, ONCE A DAY
     Route: 065
  4. DEPAMIDE [Suspect]
     Active Substance: VALPROMIDE
     Indication: BIPOLAR DISORDER
     Dosage: 900 MILLIGRAM
     Route: 065
  5. MICARDISPLUS [Suspect]
     Active Substance: HYDROCHLOROTHIAZIDE\TELMISARTAN
     Indication: HYPERTENSION
     Dosage: 1-0-0
     Route: 065
  6. REPAGLINIDE TABLET [Suspect]
     Active Substance: REPAGLINIDE
     Indication: TYPE 2 DIABETES MELLITUS
     Dosage: BID 1-1-0
     Route: 065
  7. DEPAMIDE [Suspect]
     Active Substance: VALPROMIDE
     Dosage: 2 DOSAGE FORM, ONCE A DAY
     Route: 065
     Dates: start: 2005
  8. ESIDREX [Suspect]
     Active Substance: HYDROCHLOROTHIAZIDE
     Indication: HYPERTENSION
     Dosage: BID 1-0-1
     Route: 065
  9. MICARDIS [Concomitant]
     Active Substance: TELMISARTAN
     Indication: HYPERTENSION
     Dosage: UNK
     Route: 065

REACTIONS (10)
  - Product availability issue [Unknown]
  - Balance disorder [Unknown]
  - Diabetes mellitus [Unknown]
  - Dysphagia [Unknown]
  - Fall [Unknown]
  - Anticonvulsant drug level decreased [Unknown]
  - Product solubility abnormal [Unknown]
  - Mania [Unknown]
  - Nocturia [Unknown]
  - Underdose [Unknown]

NARRATIVE: CASE EVENT DATE: 201908
